FAERS Safety Report 15192018 (Version 2)
Quarter: 2018Q3

REPORT INFORMATION
  Report Type: Spontaneous
  Country: BE (occurrence: BE)
  Receive Date: 20180724
  Receipt Date: 20180730
  Transmission Date: 20181010
  Serious: Yes (Other)
  Sender: FDA-Public Use
  Company Number: PHHY2016BE187082

PATIENT
  Sex: Female
  Weight: 78.7 kg

DRUGS (12)
  1. BEVACIZUMAB. [Suspect]
     Active Substance: BEVACIZUMAB
     Indication: OVARIAN CANCER
     Dosage: 1166 MG, Q3W
     Route: 042
     Dates: start: 20160830
  2. COVERSYL PLUS [Concomitant]
     Active Substance: INDAPAMIDE\PERINDOPRIL
     Indication: PRODUCT USED FOR UNKNOWN INDICATION
     Dosage: UNK
     Route: 065
  3. CARBOPLATIN. [Suspect]
     Active Substance: CARBOPLATIN
     Dosage: 1 OT, QW (2,7 AUC)
     Route: 042
     Dates: start: 20160623
  4. ACTONEL [Concomitant]
     Active Substance: RISEDRONATE SODIUM
     Indication: PRODUCT USED FOR UNKNOWN INDICATION
     Dosage: UNK
     Route: 065
  5. PACLITAXEL. [Suspect]
     Active Substance: PACLITAXEL
     Dosage: 45 MG/M2, QW
     Route: 042
     Dates: start: 20160623
  6. CARBOPLATIN. [Suspect]
     Active Substance: CARBOPLATIN
     Dosage: 1 OT, QW
     Route: 042
     Dates: start: 20160927
  7. PACLITAXEL. [Suspect]
     Active Substance: PACLITAXEL
     Dosage: 1 OT, QW
     Route: 042
     Dates: start: 20160927
  8. L?THYROXINE [Concomitant]
     Active Substance: LEVOTHYROXINE
     Indication: PRODUCT USED FOR UNKNOWN INDICATION
     Route: 065
  9. CARBOPLATIN. [Suspect]
     Active Substance: CARBOPLATIN
     Indication: OVARIAN CANCER
     Dosage: 1 OT, QW (2,7 AUC)
     Route: 042
     Dates: start: 20160603
  10. BREXINE [Suspect]
     Active Substance: PIROXICAM BETADEX
     Indication: PAIN IN EXTREMITY
     Dosage: UNK
     Route: 065
  11. PACLITAXEL. [Suspect]
     Active Substance: PACLITAXEL
     Indication: PRODUCT USED FOR UNKNOWN INDICATION
     Dosage: 60 MG/M2, QW
     Route: 042
     Dates: start: 20160603
  12. PRAVASTATIN. [Concomitant]
     Active Substance: PRAVASTATIN
     Indication: PRODUCT USED FOR UNKNOWN INDICATION
     Dosage: UNK
     Route: 065

REACTIONS (23)
  - Arthralgia [Not Recovered/Not Resolved]
  - Fatigue [Not Recovered/Not Resolved]
  - Urge incontinence [Not Recovered/Not Resolved]
  - Nasopharyngitis [Recovered/Resolved]
  - Oedema peripheral [Not Recovered/Not Resolved]
  - Lacrimation increased [Recovered/Resolved]
  - Musculoskeletal stiffness [Not Recovered/Not Resolved]
  - Hypertension [Recovered/Resolved]
  - Anaemia [Recovered/Resolved]
  - Nausea [Unknown]
  - Hypertension [Not Recovered/Not Resolved]
  - Vertigo [Recovered/Resolved]
  - Dysgeusia [Recovered/Resolved]
  - Sinus bradycardia [Recovered/Resolved]
  - Neutropenia [Not Recovered/Not Resolved]
  - Rhinorrhoea [Recovered/Resolved]
  - Neutropenia [Recovered/Resolved]
  - Dysphonia [Not Recovered/Not Resolved]
  - Muscle rupture [Recovered/Resolved]
  - Epistaxis [Recovered/Resolved]
  - Oedema peripheral [Recovered/Resolved]
  - Muscle rupture [Not Recovered/Not Resolved]
  - Sinus bradycardia [Not Recovered/Not Resolved]

NARRATIVE: CASE EVENT DATE: 20160615
